FAERS Safety Report 4505955-2 (Version None)
Quarter: 2004Q4

REPORT INFORMATION
  Report Type: 
  Country: None (occurrence: None)
  Receive Date: 20041119
  Receipt Date: 20041111
  Transmission Date: 20050328
  Serious: Yes (Hospitalization, Other)
  Sender: FDA-Public Use
  Company Number: PHBS2004DE15257

PATIENT
  Age: 63 Year
  Sex: Male

DRUGS (7)
  1. CYCLOSPORINE [Suspect]
     Indication: RENAL TRANSPLANT
     Route: 065
  2. BASILIXIMAB [Suspect]
     Indication: RENAL TRANSPLANT
     Route: 065
  3. MYCOPHENOLATE MOFETIL [Concomitant]
     Indication: RENAL TRANSPLANT
  4. PREDNISONE [Concomitant]
     Indication: RENAL TRANSPLANT
  5. DALTEPARIN SODIUM [Suspect]
     Indication: THROMBOSIS PROPHYLAXIS
     Dosage: 2500 IU, QD
  6. ENALAPRIL [Concomitant]
     Dosage: 10 MG, BID
  7. NADROPARIN [Suspect]
     Indication: DEEP VEIN THROMBOSIS
     Dosage: 6650 IU, BID
     Route: 065

REACTIONS (9)
  - DEEP VEIN THROMBOSIS [None]
  - DISEASE RECURRENCE [None]
  - GASTROINTESTINAL HAEMORRHAGE [None]
  - GLOMERULONEPHRITIS PROLIFERATIVE [None]
  - GLOMERULOSCLEROSIS [None]
  - KIDNEY TRANSPLANT REJECTION [None]
  - NEPHROTIC SYNDROME [None]
  - PROTEINURIA [None]
  - URINE OUTPUT DECREASED [None]
